FAERS Safety Report 12306204 (Version 1)
Quarter: 2016Q2

REPORT INFORMATION
  Report Type: Spontaneous
  Country: US (occurrence: US)
  Receive Date: 20160426
  Receipt Date: 20160426
  Transmission Date: 20160815
  Serious: No
  Sender: FDA-Public Use
  Company Number: US-PFIZER INC-2016220819

PATIENT
  Age: 81 Year
  Sex: Female
  Weight: 59 kg

DRUGS (3)
  1. PRAVASTATIN [Concomitant]
     Active Substance: PRAVASTATIN\PRAVASTATIN SODIUM
     Indication: BLOOD CHOLESTEROL ABNORMAL
     Dosage: 40 MG, 1X/DAY, IN THE EVENING
     Route: 048
     Dates: start: 2012
  2. LATANOPROST. [Suspect]
     Active Substance: LATANOPROST
     Dosage: UNK
  3. LISINOPRIL. [Concomitant]
     Active Substance: LISINOPRIL
     Indication: PREHYPERTENSION
     Dosage: 2.5 MG, 1X/DAY, IN THE MORNING
     Route: 048
     Dates: start: 2004

REACTIONS (3)
  - Eye irritation [Unknown]
  - Drug intolerance [Unknown]
  - Product substitution issue [Unknown]
